FAERS Safety Report 13696890 (Version 1)
Quarter: 2017Q2

REPORT INFORMATION
  Report Type: Spontaneous
  Country: US (occurrence: US)
  Receive Date: 20170627
  Receipt Date: 20170627
  Transmission Date: 20170830
  Serious: Yes (Hospitalization)
  Sender: FDA-Public Use
  Company Number: None

PATIENT
  Age: 44 Year
  Sex: Female
  Weight: 85 kg

DRUGS (5)
  1. DAPAGLIFLOZIN-METFORMIN [Suspect]
     Active Substance: DAPAGLIFLOZIN PROPANEDIOL\METFORMIN HYDROCHLORIDE
     Indication: TYPE 2 DIABETES MELLITUS
     Dosage: ?          OTHER DOSE:MG;?
     Route: 048
  2. TRAMADOL. [Concomitant]
     Active Substance: TRAMADOL
  3. GLYBURIDE. [Concomitant]
     Active Substance: GLYBURIDE
  4. PREGABALIN. [Concomitant]
     Active Substance: PREGABALIN
  5. NALTEXONE [Concomitant]

REACTIONS (5)
  - Blood glucose increased [None]
  - Abdominal pain [None]
  - Ketoacidosis [None]
  - Vomiting [None]
  - Metabolic acidosis [None]

NARRATIVE: CASE EVENT DATE: 20170623
